FAERS Safety Report 7306596-4 (Version None)
Quarter: 2011Q1

REPORT INFORMATION
  Report Type: 
  Country: None (occurrence: None)
  Receive Date: 20110222
  Receipt Date: 20100610
  Transmission Date: 20110831
  Serious: Yes (Other)
  Sender: FDA-Public Use
  Company Number: JP-ROCHE-709880

PATIENT
  Sex: Male

DRUGS (5)
  1. AVASTIN [Suspect]
     Indication: RECTAL CANCER
     Dosage: FORM: INJECTION
     Route: 041
     Dates: start: 20080425, end: 20080704
  2. FLUOROURACIL [Suspect]
     Dosage: ROUTE: INTRAVENOUS DRIP
     Route: 040
  3. ELPLAT [Suspect]
     Indication: RECTAL CANCER
     Dosage: DOSAGE IS UNCERTAIN, FORM: INJECTION
     Route: 041
  4. FLUOROURACIL [Suspect]
     Indication: RECTAL CANCER
     Dosage: DOSAGE IS UNCERTAIN, FORM: INJECTION
     Route: 040
  5. ISOVORIN [Suspect]
     Indication: RECTAL CANCER
     Dosage: DOSAGE IS UNCERATIN, FORM: INJECTION
     Route: 041

REACTIONS (1)
  - PULMONARY TUBERCULOSIS [None]
